FAERS Safety Report 9367632 (Version 1)
Quarter: 2013Q2

REPORT INFORMATION
  Report Type: Spontaneous
  Country: US (occurrence: US)
  Receive Date: 20130625
  Receipt Date: 20130625
  Transmission Date: 20140414
  Serious: Yes (Hospitalization)
  Sender: FDA-Public Use
  Company Number: US-B.I. PHARMACEUTICALS,INC./RIDGEFIELD-2013-BI-17777BP

PATIENT
  Age: 90 Year
  Sex: Female
  Weight: 62 kg

DRUGS (8)
  1. CARVEDILOL [Concomitant]
     Indication: HYPERTENSION
     Dosage: 6.25 MG
     Route: 048
  2. LEVOTHYROXINE [Concomitant]
     Indication: THYROID THERAPY
     Dosage: 75 MCG
     Route: 048
  3. POTASSIUM [Concomitant]
     Indication: BLOOD POTASSIUM DECREASED
     Dosage: 20 MEQ
     Route: 048
  4. PRADAXA [Suspect]
     Indication: ATRIAL FIBRILLATION
     Dosage: 300 MG
     Route: 048
     Dates: start: 201105
  5. GABAPENTIN [Concomitant]
     Indication: NEURALGIA
     Dosage: 200 MG
     Route: 048
  6. MACULAR SEAL  EYE [Concomitant]
     Indication: MACULAR DEGENERATION
     Route: 048
  7. ENALAPRIL [Concomitant]
     Indication: HYPERTENSION
     Dosage: 30 MG
     Route: 048
  8. SIMVASTATIN [Concomitant]
     Indication: BLOOD CHOLESTEROL INCREASED
     Dosage: 40 MG
     Route: 048

REACTIONS (4)
  - Compression fracture [Recovered/Resolved]
  - Hiatus hernia [Recovered/Resolved]
  - Lower limb fracture [Recovered/Resolved]
  - Nausea [Recovered/Resolved]
